FAERS Safety Report 14128464 (Version 1)
Quarter: 2017Q4

REPORT INFORMATION
  Report Type: Spontaneous
  Country: FR (occurrence: FR)
  Receive Date: 20171026
  Receipt Date: 20171026
  Transmission Date: 20180321
  Serious: Yes (Life-Threatening, Hospitalization)
  Sender: FDA-Public Use
  Company Number: FR-PFIZER INC-2017461687

PATIENT
  Age: 79 Year
  Sex: Male

DRUGS (7)
  1. ZOCOR [Concomitant]
     Active Substance: SIMVASTATIN
     Dosage: UNK
  2. AMLOR [Concomitant]
     Active Substance: AMLODIPINE BESYLATE
     Dosage: UNK
  3. XATRAL [Concomitant]
     Active Substance: ALFUZOSIN
     Dosage: UNK
  4. OFLOCET /00731801/ [Concomitant]
     Active Substance: OFLOXACIN
     Dosage: UNK
     Dates: start: 201707, end: 201707
  5. XARELTO [Interacting]
     Active Substance: RIVAROXABAN
     Indication: ATRIAL FIBRILLATION
     Dosage: 1 DF, DAILY
     Route: 048
     Dates: end: 20170803
  6. CORDARONE [Suspect]
     Active Substance: AMIODARONE HYDROCHLORIDE
     Indication: ATRIAL FIBRILLATION
     Dosage: 200 MG, 2X/DAY
     Route: 048
  7. XARELTO [Interacting]
     Active Substance: RIVAROXABAN
     Dosage: 10 MG, DAILY
     Route: 048
     Dates: start: 20170810

REACTIONS (4)
  - Intra-abdominal haematoma [Recovered/Resolved]
  - Pancreatic necrosis [Recovered/Resolved]
  - Shock haemorrhagic [Recovered/Resolved]
  - Drug interaction [Unknown]

NARRATIVE: CASE EVENT DATE: 20170803
